FAERS Safety Report 4476115-9 (Version None)
Quarter: 2004Q3

REPORT INFORMATION
  Report Type: 
  Country: None (occurrence: None)
  Receive Date: 20040923
  Receipt Date: 20040622
  Transmission Date: 20050211
  Serious: No
  Sender: FDA-Public Use
  Company Number: USA040670805

PATIENT
  Age: 74 Year
  Sex: Female

DRUGS (7)
  1. FORTEO [Suspect]
     Indication: OSTEOPOROSIS
     Dates: start: 20040601
  2. NEURONTIN [Concomitant]
  3. PEPCID [Concomitant]
  4. COLCHICINE [Concomitant]
  5. PREDNISONE [Concomitant]
  6. VICODIN [Concomitant]
  7. CELLCEPT [Concomitant]

REACTIONS (8)
  - ANOREXIA [None]
  - ANXIETY [None]
  - ASTHENIA [None]
  - DEHYDRATION [None]
  - DIARRHOEA [None]
  - DIZZINESS [None]
  - DYSPEPSIA [None]
  - FEELING ABNORMAL [None]
